FAERS Safety Report 7873638-7 (Version None)
Quarter: 2011Q4

REPORT INFORMATION
  Report Type: 
  Country: None (occurrence: None)
  Receive Date: 20111030
  Receipt Date: 20110506
  Transmission Date: 20120403
  Serious: No
  Sender: FDA-Public Use
  Company Number: US-AMGEN-USASP2011023586

PATIENT
  Sex: Male

DRUGS (1)
  1. ENBREL [Suspect]
     Indication: PSORIASIS
     Dosage: 50 MG, QWK
     Dates: start: 20060601, end: 20110422

REACTIONS (4)
  - TOOTHACHE [None]
  - DENTAL CARIES [None]
  - ORAL PAIN [None]
  - ENAMEL ANOMALY [None]
